FAERS Safety Report 16113828 (Version 6)
Quarter: 2019Q4

REPORT INFORMATION
  Report Type: Report from Study
  Country: FR (occurrence: FR)
  Receive Date: 20190325
  Receipt Date: 20191113
  Transmission Date: 20200122
  Serious: Yes (Hospitalization, Other)
  Sender: FDA-Public Use
  Company Number: FR-EISAI MEDICAL RESEARCH-EC-2019-053926

PATIENT
  Age: 70 Year
  Sex: Male
  Weight: 84 kg

DRUGS (14)
  1. DUPHALAC [Concomitant]
     Active Substance: LACTULOSE
  2. SMECTA [Concomitant]
     Active Substance: MONTMORILLONITE
  3. LEVOTHYROX [Concomitant]
     Active Substance: LEVOTHYROXINE
  4. ALFUZOSINE LP [Concomitant]
  5. IALUSET CREAM [Concomitant]
  6. CITRATE OF BETAINE [Concomitant]
  7. RIFAXIMINE [Concomitant]
     Active Substance: RIFAXIMIN
  8. LENVATINIB [Suspect]
     Active Substance: LENVATINIB
     Indication: HEPATOCELLULAR CARCINOMA
     Route: 048
     Dates: start: 20190103, end: 20190327
  9. LASILIX [Concomitant]
     Active Substance: FUROSEMIDE
  10. PEMBROLIZUMAB. [Suspect]
     Active Substance: PEMBROLIZUMAB
     Indication: HEPATOCELLULAR CARCINOMA
     Route: 041
     Dates: start: 20190103, end: 20190711
  11. LENVATINIB [Suspect]
     Active Substance: LENVATINIB
     Route: 048
     Dates: start: 20190328, end: 20190720
  12. CHLORIDE POTASSIUM [Concomitant]
  13. JANUMET [Concomitant]
     Active Substance: METFORMIN HYDROCHLORIDE\SITAGLIPTIN PHOSPHATE
  14. KETOPROFENE [Concomitant]
     Active Substance: KETOPROFEN

REACTIONS (4)
  - Diarrhoea [Recovered/Resolved]
  - Upper gastrointestinal haemorrhage [Recovered/Resolved]
  - Oesophageal squamous cell carcinoma [Recovered/Resolved]
  - Prostatic obstruction [Recovered/Resolved]

NARRATIVE: CASE EVENT DATE: 20190321
